FAERS Safety Report 10285900 (Version 1)
Quarter: 2014Q3

REPORT INFORMATION
  Report Type: Spontaneous
  Country: US (occurrence: None)
  Receive Date: 20140703
  Receipt Date: 20140703
  Transmission Date: 20150326
  Serious: Yes (Disabling, Other)
  Sender: FDA-Public Use
  Company Number: None

PATIENT
  Age: 51 Year
  Sex: Female
  Weight: 53.52 kg

DRUGS (3)
  1. PROGESTAN [Suspect]
     Active Substance: PROGESTERONE
     Indication: HYSTERECTOMY
  2. PROGESTERONE. [Suspect]
     Active Substance: PROGESTERONE
  3. PROGESTAN [Suspect]
     Active Substance: PROGESTERONE
     Indication: HORMONE REPLACEMENT THERAPY

REACTIONS (10)
  - Mental disorder [None]
  - Drug effect increased [None]
  - Headache [None]
  - Disturbance in attention [None]
  - Impaired driving ability [None]
  - Somnolence [None]
  - Feeling abnormal [None]
  - Hypersomnia [None]
  - Fatigue [None]
  - Visual impairment [None]

NARRATIVE: CASE EVENT DATE: 20140616
